FAERS Safety Report 16363472 (Version 1)
Quarter: 2019Q2

REPORT INFORMATION
  Report Type: Report from Study
  Country: UG (occurrence: UG)
  Receive Date: 20190528
  Receipt Date: 20190528
  Transmission Date: 20190711
  Serious: Yes (Other)
  Sender: FDA-Public Use
  Company Number: UG-GILEAD-2019-0403832

PATIENT
  Age: 19 Year
  Sex: Female
  Weight: 55 kg

DRUGS (6)
  1. CEFIXIME. [Concomitant]
     Active Substance: CEFIXIME
     Indication: DYSURIA
     Dosage: UNK
     Dates: start: 20190107
  2. SECNIDAZOLE [Concomitant]
     Active Substance: SECNIDAZOLE
     Indication: URINE ODOUR ABNORMAL
     Dosage: UNK
     Dates: start: 20190107, end: 20190107
  3. NYSTATIN. [Concomitant]
     Active Substance: NYSTATIN
     Indication: VULVOVAGINAL PRURITUS
     Dosage: UNK
     Dates: start: 20190321
  4. CETIRIZINE [Concomitant]
     Active Substance: CETIRIZINE HYDROCHLORIDE
     Indication: INFLUENZA
     Dosage: UNK
     Dates: start: 20190321
  5. ZECUF [Concomitant]
     Indication: INFLUENZA
     Dosage: UNK
     Dates: start: 20190321
  6. EMTRICITABINE/TENOFOVIR DISOPROXIL FUMARATE [Suspect]
     Active Substance: EMTRICITABINE\TENOFOVIR DISOPROXIL FUMARATE
     Indication: PROPHYLAXIS AGAINST HIV INFECTION
     Dosage: UNK
     Route: 048
     Dates: start: 20190321

REACTIONS (2)
  - Foetal death [Recovered/Resolved]
  - Maternal exposure during pregnancy [Recovered/Resolved]

NARRATIVE: CASE EVENT DATE: 20190321
